FAERS Safety Report 5214111-4 (Version None)
Quarter: 2007Q1

REPORT INFORMATION
  Report Type: 
  Country: None (occurrence: None)
  Receive Date: 20070122
  Receipt Date: 20070111
  Transmission Date: 20070707
  Serious: Yes (Hospitalization)
  Sender: FDA-Public Use
  Company Number: FR-AVENTIS-200613718FR

PATIENT
  Age: 68 Year
  Sex: Male
  Weight: 80 kg

DRUGS (6)
  1. FLAGYL [Suspect]
     Route: 048
     Dates: start: 20060701
  2. FLAGYL [Suspect]
     Route: 048
     Dates: start: 20061006, end: 20061013
  3. TAHOR [Concomitant]
     Route: 048
  4. BISOPROLOL FUMARATE [Concomitant]
     Route: 048
  5. KARDEGIC                           /00002703/ [Concomitant]
     Indication: ANGINA PECTORIS
     Route: 048
  6. RAMIPRIL [Concomitant]
     Route: 048

REACTIONS (1)
  - CONVULSION [None]
